FAERS Safety Report 15725270 (Version 1)
Quarter: 2018Q4

REPORT INFORMATION
  Report Type: Spontaneous
  Country: NL (occurrence: NL)
  Receive Date: 20181215
  Receipt Date: 20181215
  Transmission Date: 20190205
  Serious: Yes (Other)
  Sender: FDA-Public Use
  Company Number: NL-AUROBINDO-AUR-APL-2018-056142

PATIENT
  Sex: Male

DRUGS (1)
  1. FLUOXETINE AUROBINDO 20 MG CAPSULES, HARD [Suspect]
     Active Substance: FLUOXETINE HYDROCHLORIDE
     Indication: BRAIN INJURY
     Dosage: ONE CAPSULE PER DAY
     Route: 065
     Dates: end: 20181114

REACTIONS (6)
  - Suicidal ideation [Not Recovered/Not Resolved]
  - Feeling abnormal [Unknown]
  - Impaired quality of life [Unknown]
  - Phantom pain [Not Recovered/Not Resolved]
  - Tremor [Unknown]
  - Aggression [Unknown]
